FAERS Safety Report 25458799 (Version 1)
Quarter: 2025Q2

REPORT INFORMATION
  Report Type: Spontaneous
  Country: US (occurrence: US)
  Receive Date: 20250620
  Receipt Date: 20250620
  Transmission Date: 20250717
  Serious: No
  Sender: TEVA
  Company Number: US-TEVA-VS-3342875

PATIENT

DRUGS (1)
  1. IMATINIB [Suspect]
     Active Substance: IMATINIB
     Indication: Product used for unknown indication
     Route: 048

REACTIONS (7)
  - Nausea [Unknown]
  - Product odour abnormal [Unknown]
  - Diarrhoea [Unknown]
  - Rash [Unknown]
  - Malaise [Unknown]
  - Muscle spasms [Unknown]
  - Brain fog [Unknown]
